FAERS Safety Report 5383136-0 (Version None)
Quarter: 2007Q3

REPORT INFORMATION
  Report Type: 
  Country: None (occurrence: None)
  Receive Date: 20070710
  Receipt Date: 20070627
  Transmission Date: 20080115
  Serious: Yes (Hospitalization)
  Sender: FDA-Public Use
  Company Number: US-ELI_LILLY_AND_COMPANY-US200706006108

PATIENT
  Age: 53 Year
  Sex: Male

DRUGS (1)
  1. HUMALOG [Suspect]
     Indication: DIABETES MELLITUS
     Dosage: UNK, UNK
     Dates: start: 20030101

REACTIONS (8)
  - ANOREXIA [None]
  - BACK PAIN [None]
  - CLOSTRIDIAL INFECTION [None]
  - HAEMODIALYSIS [None]
  - MUSCULOSKELETAL PAIN [None]
  - NECK PAIN [None]
  - PERITONITIS [None]
  - WEIGHT DECREASED [None]
